FAERS Safety Report 10027357 (Version 2)
Quarter: 2014Q2

REPORT INFORMATION
  Report Type: Spontaneous
  Country: IT (occurrence: None)
  Receive Date: 20140318
  Receipt Date: 20140514
  Transmission Date: 20141212
  Serious: Yes (Hospitalization)
  Sender: FDA-Public Use
  Company Number: AUR-APL-2014-02707

PATIENT
  Age: 40 Year
  Sex: Female

DRUGS (1)
  1. AMOXICILLIN (AMOXICILLIN) [Suspect]
     Indication: OROPHARYNGEAL PAIN
     Dosage: TOTAL,
     Route: 048
     Dates: start: 20140228, end: 20140228

REACTIONS (3)
  - Dyspnoea [None]
  - Generalised erythema [None]
  - Pruritus generalised [None]
